FAERS Safety Report 15230534 (Version 1)
Quarter: 2018Q3

REPORT INFORMATION
  Report Type: Report from Study
  Country: DE (occurrence: DE)
  Receive Date: 20180802
  Receipt Date: 20180802
  Transmission Date: 20181010
  Serious: Yes (Other)
  Sender: FDA-Public Use
  Company Number: DE-ROCHE-1903494

PATIENT
  Sex: Female
  Weight: 60 kg

DRUGS (12)
  1. BEVACIZUMAB. [Suspect]
     Active Substance: BEVACIZUMAB
     Route: 042
     Dates: start: 20161212
  2. PACLITAXEL. [Concomitant]
     Active Substance: PACLITAXEL
     Indication: BREAST CANCER
     Dosage: 143.77 ? 151.68 MG
     Route: 042
     Dates: start: 20160208, end: 20170102
  3. TAVEGIL [Concomitant]
     Active Substance: CLEMASTINE FUMARATE
     Dosage: DAY 1, 8 AND 15 OF CHEMOTHERAPY CYCLE
     Route: 042
     Dates: start: 20160208
  4. BEVACIZUMAB. [Suspect]
     Active Substance: BEVACIZUMAB
     Route: 042
     Dates: start: 20150102
  5. ZANTAC [Concomitant]
     Active Substance: RANITIDINE HYDROCHLORIDE
     Dosage: DAY 1, 8 AND 15 OF CHEMOTHERAPY CYCLE
     Route: 042
     Dates: start: 20160208
  6. BEVACIZUMAB. [Suspect]
     Active Substance: BEVACIZUMAB
     Indication: BREAST CANCER
     Route: 042
     Dates: start: 20160208
  7. LOSARTAN. [Concomitant]
     Active Substance: LOSARTAN
     Route: 048
     Dates: start: 201707
  8. BEVACIZUMAB. [Suspect]
     Active Substance: BEVACIZUMAB
     Route: 042
     Dates: start: 20160919
  9. FORTECORTIN [Concomitant]
     Active Substance: DEXAMETHASONE
     Indication: PROPHYLAXIS OF NAUSEA AND VOMITING
     Dosage: DAY 1, 8 AND 15 OF CHEMOTHERAPY CYCLE
     Route: 042
     Dates: start: 20160208
  10. ALOXI [Concomitant]
     Active Substance: PALONOSETRON HYDROCHLORIDE
     Indication: PROPHYLAXIS OF NAUSEA AND VOMITING
     Dosage: ONCE
     Route: 042
     Dates: start: 20160509, end: 20160509
  11. BEVACIZUMAB. [Suspect]
     Active Substance: BEVACIZUMAB
     Route: 042
     Dates: start: 20160808
  12. KEVATRIL [Concomitant]
     Active Substance: GRANISETRON HYDROCHLORIDE
     Indication: PROPHYLAXIS OF NAUSEA AND VOMITING
     Dosage: DAY 1, 8 AND 15 OF CHEMOTHERAPY CYCLE
     Route: 042
     Dates: start: 20160208

REACTIONS (4)
  - Hypertension [Recovered/Resolved]
  - Hyperkalaemia [Recovered/Resolved]
  - Polyneuropathy [Recovering/Resolving]
  - Hypothyroidism [Unknown]

NARRATIVE: CASE EVENT DATE: 20160808
